FAERS Safety Report 24536415 (Version 1)
Quarter: 2024Q4

REPORT INFORMATION
  Report Type: Report from Study
  Country: NL (occurrence: NL)
  Receive Date: 20241022
  Receipt Date: 20241022
  Transmission Date: 20250115
  Serious: Yes (Death, Other)
  Sender: Unknown Manufacturer
  Company Number: NL-VER-202400063

PATIENT
  Sex: Male

DRUGS (3)
  1. TRIPTORELIN PAMOATE [Suspect]
     Active Substance: TRIPTORELIN PAMOATE
     Indication: Prostate cancer
     Dosage: SUSPENSION FOR INJECTION
     Route: 030
     Dates: start: 20210511
  2. TRIPTORELIN PAMOATE [Suspect]
     Active Substance: TRIPTORELIN PAMOATE
     Indication: Prostate cancer
     Dosage: SUSPENSION FOR INJECTION
     Route: 030
     Dates: start: 20240307
  3. TRIPTORELIN PAMOATE [Suspect]
     Active Substance: TRIPTORELIN PAMOATE
     Indication: Prostate cancer
     Dosage: SUSPENSION FOR INJECTION
     Route: 030
     Dates: start: 20240826

REACTIONS (1)
  - Death [Fatal]
